FAERS Safety Report 5743513-2 (Version None)
Quarter: 2008Q2

REPORT INFORMATION
  Report Type: 
  Country: None (occurrence: None)
  Receive Date: 20080520
  Receipt Date: 20080507
  Transmission Date: 20081010
  Serious: Yes (Hospitalization)
  Sender: FDA-Public Use
  Company Number: GB-ELI_LILLY_AND_COMPANY-GB200805003093

PATIENT

DRUGS (12)
  1. ZYPREXA [Suspect]
     Dosage: 20 MG, DAILY (1/D)
     Route: 064
  2. LITHIUM [Concomitant]
     Indication: BIPOLAR DISORDER
     Dosage: 1.7 G, DAILY (1/D)
     Route: 064
  3. CLONAZEPAM [Concomitant]
     Indication: POOR QUALITY SLEEP
     Dosage: 0.5 MG, OTHER AT NIGHT
     Route: 064
  4. FOLIC ACID [Concomitant]
     Dosage: 500 UG, DAILY (1/D)
     Route: 064
  5. LACTULOSE [Concomitant]
     Dosage: UNK, UNKNOWN
     Route: 064
  6. RANITIDINE [Concomitant]
     Indication: PREMEDICATION
     Dosage: 50 MG, UNKNOWN
     Route: 064
  7. METOCLOPRAMIDE [Concomitant]
     Indication: PREMEDICATION
     Dosage: 10 MG, UNKNOWN
     Route: 064
  8. SODIUM CITRATE [Concomitant]
     Indication: PREMEDICATION
     Dosage: 30 ML, UNKNOWN
     Route: 064
  9. THIOPENTONE [Concomitant]
     Indication: ANAESTHESIA
     Dosage: 250 MG, UNKNOWN
     Route: 064
  10. SUXAMETHONIUM [Concomitant]
     Indication: ANAESTHESIA
     Dosage: 100 MG, UNKNOWN
     Route: 064
  11. ISOFLURANE [Concomitant]
     Indication: ANAESTHESIA
     Dosage: UNK, UNKNOWN
     Route: 064
  12. HARTMANN'S SOLUTION [Concomitant]
     Dosage: 1 LITER, UNKNOWN
     Route: 064

REACTIONS (3)
  - DRUG EXPOSURE DURING PREGNANCY [None]
  - PREMATURE BABY [None]
  - THERAPEUTIC AGENT TOXICITY [None]
